FAERS Safety Report 5518166-9 (Version None)
Quarter: 2007Q4

REPORT INFORMATION
  Report Type: 
  Country: None (occurrence: None)
  Receive Date: 20071113
  Receipt Date: 20071030
  Transmission Date: 20080405
  Serious: Yes (Hospitalization)
  Sender: FDA-Public Use
  Company Number: 02100-JPN-07-0694

PATIENT
  Age: 65 Year
  Sex: Male

DRUGS (10)
  1. CILOSTAZOL [Suspect]
     Indication: ANGIOPATHY
     Dosage: 200 MG, ORAL
     Route: 048
     Dates: start: 20051205
  2. GLIMEPIRIDE [Concomitant]
  3. LISINOPRIL [Concomitant]
  4. CALCIUM DOBESILATE [Concomitant]
  5. CARVEDILOL [Concomitant]
  6. DOXAZOCIN [Concomitant]
  7. EPROSARTAN [Concomitant]
  8. ARTEMISIA ASIATTCA 95% ETHANOL EXTRACT [Concomitant]
  9. SIMVASTATIN [Concomitant]
  10. REBAMIPIDE [Concomitant]

REACTIONS (3)
  - DIABETIC NEPHROPATHY [None]
  - OEDEMA PERIPHERAL [None]
  - WEIGHT INCREASED [None]
